FAERS Safety Report 4911016-0 (Version None)
Quarter: 2006Q1

REPORT INFORMATION
  Report Type: 
  Country: None (occurrence: None)
  Receive Date: 20060214
  Receipt Date: 20060111
  Transmission Date: 20060701
  Serious: Yes (Hospitalization)
  Sender: FDA-Public Use
  Company Number: JP-MERCK-0601USA01689

PATIENT
  Age: 22 Year
  Sex: Male

DRUGS (5)
  1. PROPECIA [Suspect]
     Indication: ALOPECIA
     Route: 048
     Dates: start: 20051229, end: 20060106
  2. CRAVIT [Concomitant]
     Route: 048
     Dates: end: 20060106
  3. BISOLVON [Concomitant]
     Route: 048
     Dates: end: 20060106
  4. UNIPHYL [Concomitant]
     Route: 048
     Dates: end: 20060106
  5. [THERAPY UNSPECIFIED] [Concomitant]
     Route: 048
     Dates: end: 20060106

REACTIONS (3)
  - GAIT DISTURBANCE [None]
  - TREMOR [None]
  - VISUAL DISTURBANCE [None]
